FAERS Safety Report 9524424 (Version 1)
Quarter: 2013Q1

REPORT INFORMATION
  Report Type: Spontaneous
  Country: US (occurrence: None)
  Receive Date: 20130305
  Receipt Date: 20130305
  Transmission Date: 20140127
  Serious: Yes (Other)
  Sender: FDA-Public Use
  Company Number: 163-21880-12031543

PATIENT
  Age: 68 Year
  Sex: Male

DRUGS (7)
  1. REVLIMID [Suspect]
     Indication: PLASMA CELL MYELOMA
     Dosage: 10 MG, QD X 21D/28D/ PO
     Route: 048
     Dates: start: 201110
  2. DECADRON [Concomitant]
  3. ASPIRIN (ACETYLSALICYLIC ACID) (UNKNOWN) (ACETYLSALICYLIC ACID) [Concomitant]
  4. AMBIEN (ZOLPIDEM TARTRATE) (UNKNOWN) [Concomitant]
  5. MARINOL (DRONABINOL) (UNKNOWN) [Concomitant]
  6. VICODIN (VICODIN) (UNKNOWN) [Concomitant]
  7. CYANOCOBALAMIN (CYANOCOBALAMIN) (UNKNOWN) [Concomitant]

REACTIONS (3)
  - Pneumonia [None]
  - Neuropathy peripheral [None]
  - Fatigue [None]
